FAERS Safety Report 18750926 (Version 2)
Quarter: 2021Q1

REPORT INFORMATION
  Report Type: Spontaneous
  Country: US (occurrence: US)
  Receive Date: 20210118
  Receipt Date: 20210310
  Transmission Date: 20210419
  Serious: No
  Sender: FDA-Public Use
  Company Number: US-009507513-2101USA001854

PATIENT
  Age: 35 Year
  Sex: Female

DRUGS (6)
  1. STERILE DILUENT (WATER) [Suspect]
     Active Substance: WATER
     Dosage: UNK
     Dates: start: 20201216, end: 20201216
  2. BOOSTRIX [Concomitant]
     Active Substance: TETANUS TOXOID, REDUCED DIPHTHERIA TOXOID AND ACELLULAR PERTUSSIS VACCINE, ADSORBED ANTIGENS
     Dosage: UNK
     Route: 030
     Dates: start: 20201216
  3. HEPLISAV [Concomitant]
     Dosage: UNK
     Route: 030
     Dates: start: 20201216
  4. VARIVAX [Suspect]
     Active Substance: VARICELLA-ZOSTER VIRUS STRAIN OKA/MERCK LIVE ANTIGEN
     Indication: PROPHYLAXIS
     Dosage: .5 MILLILITER
     Route: 058
     Dates: start: 20201216
  5. STERILE DILUENT (WATER) [Concomitant]
     Active Substance: WATER
     Dosage: UNK
  6. M?M?R II [Concomitant]
     Active Substance: MEASLES VIRUS STRAIN ENDERS^ ATTENUATED EDMONSTON LIVE ANTIGEN\MUMPS VIRUS STRAIN B LEVEL JERYL LYNN LIVE ANTIGEN\RUBELLA VIRUS STRAIN WISTAR RA 27/3 LIVE ANTIGEN
     Indication: PROPHYLAXIS
     Dosage: .5 MILLILITER
     Route: 058
     Dates: start: 20201216

REACTIONS (2)
  - Product preparation error [Unknown]
  - No adverse event [Unknown]

NARRATIVE: CASE EVENT DATE: 20201216
